FAERS Safety Report 16663163 (Version 1)
Quarter: 2019Q3

REPORT INFORMATION
  Report Type: Report from Study
  Country: US (occurrence: US)
  Receive Date: 20190802
  Receipt Date: 20190802
  Transmission Date: 20191004
  Serious: Yes (Hospitalization)
  Sender: FDA-Public Use
  Company Number: US-EXELIXIS-CABO-19018447

PATIENT
  Age: 83 Year
  Sex: Male

DRUGS (17)
  1. GLIMEPIRIDE. [Concomitant]
     Active Substance: GLIMEPIRIDE
  2. FINASTERIDE. [Concomitant]
     Active Substance: FINASTERIDE
  3. PAROXETINE. [Concomitant]
     Active Substance: PAROXETINE
  4. FUROSEMIDE. [Concomitant]
     Active Substance: FUROSEMIDE
  5. PREDNISONE. [Concomitant]
     Active Substance: PREDNISONE
  6. AMLODIPINE [Concomitant]
     Active Substance: AMLODIPINE BESYLATE
  7. ELIQUIS [Concomitant]
     Active Substance: APIXABAN
  8. DRONABINOL. [Concomitant]
     Active Substance: DRONABINOL
  9. METOPROLOL. [Concomitant]
     Active Substance: METOPROLOL
  10. VITAMIN D [Concomitant]
     Active Substance: VITAMIN D NOS
  11. AMIODARONE [Concomitant]
     Active Substance: AMIODARONE
  12. HYDROXYCHLOROQUINE [Concomitant]
     Active Substance: HYDROXYCHLOROQUINE
  13. FOLIC ACID. [Concomitant]
     Active Substance: FOLIC ACID
  14. CABOMETYX [Suspect]
     Active Substance: CABOZANTINIB S-MALATE
     Indication: RENAL CANCER
     Dosage: 40 MG, QD
     Route: 048
     Dates: start: 201809
  15. LEVEMIR [Concomitant]
     Active Substance: INSULIN DETEMIR
  16. LEVOTHYROXINE. [Concomitant]
     Active Substance: LEVOTHYROXINE
  17. OMEPRAZOLE. [Concomitant]
     Active Substance: OMEPRAZOLE

REACTIONS (2)
  - Stomatitis [Unknown]
  - Dehydration [Unknown]

NARRATIVE: CASE EVENT DATE: 20190120
